FAERS Safety Report 4806210-3 (Version None)
Quarter: 2005Q4

REPORT INFORMATION
  Report Type: 
  Country: None (occurrence: None)
  Receive Date: 20051021
  Receipt Date: 20050826
  Transmission Date: 20060501
  Serious: Yes (Life-Threatening, Hospitalization, Other)
  Sender: FDA-Public Use
  Company Number: IE-BRISTOL-MYERS SQUIBB COMPANY-13092127

PATIENT
  Age: 65 Year
  Sex: Male
  Weight: 92 kg

DRUGS (8)
  1. ABILIFY [Suspect]
     Indication: SCHIZOPHRENIA
     Route: 048
     Dates: start: 20050322, end: 20050514
  2. STELAZINE [Concomitant]
     Indication: SCHIZOPHRENIA
     Route: 048
     Dates: start: 19950101, end: 20050819
  3. BIPERIDENE [Concomitant]
     Indication: EXTRAPYRAMIDAL DISORDER
     Route: 048
     Dates: start: 19950101
  4. ZOTON [Concomitant]
     Route: 048
  5. LIPITOR [Concomitant]
     Route: 048
  6. METFORMIN HCL [Concomitant]
     Route: 048
  7. NU-SEALS ASPIRIN [Concomitant]
     Route: 048
  8. EMCOR [Concomitant]
     Route: 048

REACTIONS (2)
  - ARRHYTHMIA [None]
  - BRADYCARDIA [None]
